FAERS Safety Report 6530374-7 (Version None)
Quarter: 2010Q1

REPORT INFORMATION
  Report Type: 
  Country: None (occurrence: None)
  Receive Date: 20100107
  Receipt Date: 20091222
  Transmission Date: 20100710
  Serious: Yes (Hospitalization)
  Sender: FDA-Public Use
  Company Number: JP-ABBOTT-10P-087-0617883-00

PATIENT
  Age: 39 Year
  Sex: Male

DRUGS (10)
  1. NORVIR [Suspect]
     Indication: HIV INFECTION
     Route: 048
     Dates: start: 20040728, end: 20050424
  2. NORVIR [Suspect]
     Route: 048
     Dates: start: 20080714
  3. EFAVIRENZ [Concomitant]
     Indication: HIV INFECTION
     Route: 048
     Dates: start: 20050425, end: 20080713
  4. ZERIT [Concomitant]
     Indication: HIV INFECTION
     Route: 048
     Dates: start: 19981221, end: 20050425
  5. REYATAZ [Concomitant]
     Indication: HIV INFECTION
     Route: 048
     Dates: start: 20040130, end: 20040727
  6. REYATAZ [Concomitant]
     Route: 048
     Dates: start: 20040728, end: 20050424
  7. EPIVIR [Concomitant]
     Indication: HIV INFECTION
     Route: 048
     Dates: start: 19971229, end: 20050424
  8. NEO-MINOPHAGEN C [Concomitant]
     Indication: DRUG USE FOR UNKNOWN INDICATION
     Dates: start: 20050401, end: 20050615
  9. ANTIHEMOPHILIC FACTOR (HUMAN) [Concomitant]
     Indication: DRUG USE FOR UNKNOWN INDICATION
     Dates: start: 20050401, end: 20050411
  10. OCTOCOG ALPHA [Concomitant]
     Indication: DRUG USE FOR UNKNOWN INDICATION
     Dates: start: 20050412

REACTIONS (1)
  - HEPATIC CIRRHOSIS [None]
